FAERS Safety Report 11105914 (Version 1)
Quarter: 2015Q2

REPORT INFORMATION
  Report Type: Spontaneous
  Country: US (occurrence: None)
  Receive Date: 20150511
  Receipt Date: 20150511
  Transmission Date: 20150821
  Serious: No
  Sender: FDA-Public Use
  Company Number: None

PATIENT
  Age: 41 Year
  Sex: Female
  Weight: 58.97 kg

DRUGS (1)
  1. PLAQUENIL [Suspect]
     Active Substance: HYDROXYCHLOROQUINE SULFATE
     Indication: SAPHO SYNDROME
     Dosage: ABOUT 6 MONTHS, 1 PILL, BID, ORAL
     Route: 048

REACTIONS (3)
  - Product substitution issue [None]
  - Condition aggravated [None]
  - General symptom [None]
